FAERS Safety Report 23661441 (Version 1)
Quarter: 2024Q1

REPORT INFORMATION
  Report Type: Spontaneous
  Country: US (occurrence: US)
  Receive Date: 20240322
  Receipt Date: 20240322
  Transmission Date: 20240410
  Serious: Yes (Hospitalization)
  Sender: FDA-Public Use
  Company Number: US-BIOGEN-2024BI01255767

PATIENT
  Sex: Male
  Weight: 152.54 kg

DRUGS (22)
  1. TECFIDERA [Suspect]
     Active Substance: DIMETHYL FUMARATE
     Indication: Multiple sclerosis
     Route: 050
  2. ARMODAFINIL [Concomitant]
     Active Substance: ARMODAFINIL
     Indication: Product used for unknown indication
     Dosage: ARMODAFINIL 250.MG TABLET?TAKE 1. TABLET(S) EVERY DAY BY ORAL ROUTE.
     Route: 050
  3. VITAMIN D3 [Concomitant]
     Active Substance: CHOLECALCIFEROL
     Indication: Product used for unknown indication
     Dosage: CHOLECALCIFEROL (VITAMIN D3)?TAKE 1 CAP ORALLY EVERYDAY?INTERNAL NOTE: 800-1000 UNITS EVERY DAY
     Route: 050
  4. COLESTIPOL [Concomitant]
     Active Substance: COLESTIPOL
     Indication: Product used for unknown indication
     Dosage: COLESTIPOL 1 GRAM TABLET?TAKE 2 TABLET(S) TWICE A DAY BY ORAL ROUTE.
     Route: 050
  5. VITAMIN D2 [Concomitant]
     Active Substance: ERGOCALCIFEROL
     Indication: Product used for unknown indication
     Route: 050
  6. FLECAINIDE [Concomitant]
     Active Substance: FLECAINIDE
     Indication: Chest pain
     Dosage: AS NEEDED FOR CHEST PAIN
     Route: 050
  7. FLUOXETINE [Concomitant]
     Active Substance: FLUOXETINE HYDROCHLORIDE
     Indication: Product used for unknown indication
     Route: 050
  8. GABAPENTIN [Concomitant]
     Active Substance: GABAPENTIN
     Indication: Product used for unknown indication
     Route: 050
  9. GEMTESA [Concomitant]
     Active Substance: VIBEGRON
     Indication: Product used for unknown indication
     Route: 050
  10. INDOMETHACIN [Concomitant]
     Active Substance: INDOMETHACIN
     Indication: Arthritis
     Route: 050
  11. LEVOTHYROXINE [Concomitant]
     Active Substance: LEVOTHYROXINE\LEVOTHYROXINE SODIUM
     Indication: Product used for unknown indication
     Route: 050
  12. LEVOTHYROXINE [Concomitant]
     Active Substance: LEVOTHYROXINE\LEVOTHYROXINE SODIUM
     Route: 050
  13. MELOXICAM [Concomitant]
     Active Substance: MELOXICAM
     Indication: Product used for unknown indication
     Route: 050
  14. METFORMIN [Concomitant]
     Active Substance: METFORMIN HYDROCHLORIDE
     Indication: Product used for unknown indication
     Route: 050
  15. MINERALS\VITAMINS [Concomitant]
     Active Substance: MINERALS\VITAMINS
     Indication: Product used for unknown indication
     Dosage: TAKE ORALLY EVERYDAY
     Route: 050
  16. OXYBUTYNIN CHLORIDE [Concomitant]
     Active Substance: OXYBUTYNIN CHLORIDE
     Indication: Product used for unknown indication
     Route: 050
  17. PRIMIDONE [Concomitant]
     Active Substance: PRIMIDONE
     Indication: Product used for unknown indication
     Dosage: PRIMIDONE 50 MG TABLET?TAKE 1/2 TABLET BY MOUTH EVERY EVENING AFTER 2 TO 4 WEEKS MAY INCREASE TO ...
     Route: 050
  18. SERTRALINE [Concomitant]
     Active Substance: SERTRALINE HYDROCHLORIDE
     Indication: Product used for unknown indication
     Dosage: SERTRALINE 100 MG TABLET?TAKE 1.5 TABLET EVERY DAY BY ORAL ROUTE
     Route: 050
  19. TESTOSTERONE [Concomitant]
     Active Substance: TESTOSTERONE
     Indication: Product used for unknown indication
     Dosage: TAKE 1 PATCHES, TOPICAL AL BEDTIME, APPLY TO BACK. ABDOMEN, UPPER ARM OR THIGHS INTERNAL NOTE: (A...
     Route: 050
  20. TIZANIDINE [Concomitant]
     Active Substance: TIZANIDINE
     Indication: Product used for unknown indication
     Dosage: TIZANIDINE 2 MG TABLET?TAKE ONE TO TWO TABLETS BY MOUTH EVERY NIGHT AT BEDTIME
     Route: 050
  21. VALIUM [Concomitant]
     Active Substance: DIAZEPAM
     Indication: Product used for unknown indication
     Dosage: VALIUM 5 MG TABLET?TAKE 1 TABLET PO 30-45 MINS BEFORE PROCEDURE, MAY REPEAT ONCO AS NEEDED.
     Route: 050
  22. vitamin B12-folic acid [Concomitant]
     Indication: Product used for unknown indication
     Route: 050

REACTIONS (1)
  - Wound sepsis [Unknown]
